FAERS Safety Report 10585561 (Version 13)
Quarter: 2018Q2

REPORT INFORMATION
  Report Type: Report from Study
  Country: PH (occurrence: PH)
  Receive Date: 20141114
  Receipt Date: 20180607
  Transmission Date: 20180711
  Serious: Yes (Life-Threatening, Hospitalization, Other)
  Sender: FDA-Public Use
  Company Number: PH-GLAXOSMITHKLINE-PH2014016845

PATIENT
  Age: 20 Year
  Sex: Female
  Weight: 37 kg

DRUGS (6)
  1. AMLODIPINE [Concomitant]
     Active Substance: AMLODIPINE BESYLATE
     Indication: HYPERTENSION
     Dosage: 10 MG, QD
     Route: 048
     Dates: start: 20141108
  2. OMEPRAZOLE. [Concomitant]
     Active Substance: OMEPRAZOLE
     Indication: BACTERIAL INFECTION
     Dosage: 40 MG, QD
     Route: 048
     Dates: start: 20141022
  3. CALCIUM + COLECALCIFEROL [Concomitant]
     Active Substance: CALCIUM\CHOLECALCIFEROL
     Indication: OSTEOPOROSIS
     Dosage: 600 MG, BID
     Route: 048
     Dates: start: 20140508
  4. BELIMUMAB [Suspect]
     Active Substance: BELIMUMAB
     Indication: SYSTEMIC LUPUS ERYTHEMATOSUS
     Dosage: 10 MG/KG, CYC
     Route: 042
     Dates: start: 20140604
  5. CEFUROXIME. [Concomitant]
     Active Substance: CEFUROXIME
     Indication: URINARY TRACT INFECTION
     Dosage: 500 MG, TID
     Route: 048
     Dates: start: 20141028
  6. KALIUM DURULES [Concomitant]
     Indication: HYPOKALAEMIA
     Dosage: 750 MG, 6D
     Route: 048
     Dates: start: 20141021

REACTIONS (2)
  - Tuberculosis gastrointestinal [Recovered/Resolved]
  - Pancreatitis acute [Recovered/Resolved]

NARRATIVE: CASE EVENT DATE: 20141102
